FAERS Safety Report 5074007-8 (Version None)
Quarter: 2006Q3

REPORT INFORMATION
  Report Type: 
  Country: None (occurrence: None)
  Receive Date: 20060808
  Receipt Date: 20060425
  Transmission Date: 20061208
  Serious: No
  Sender: FDA-Public Use
  Company Number: US-AMGEN-KDL177941

PATIENT
  Sex: Female
  Weight: 89.4 kg

DRUGS (2)
  1. PROCRIT [Suspect]
     Indication: ANAEMIA OF MALIGNANT DISEASE
     Route: 058
     Dates: start: 20060327
  2. VENOFER [Concomitant]

REACTIONS (1)
  - HAEMOGLOBIN DECREASED [None]
